FAERS Safety Report 4654275-4 (Version None)
Quarter: 2005Q2

REPORT INFORMATION
  Report Type: 
  Country: None (occurrence: None)
  Receive Date: 20050404
  Receipt Date: 20041206
  Transmission Date: 20051028
  Serious: No
  Sender: FDA-Public Use
  Company Number: USA041285753

PATIENT
  Sex: Female

DRUGS (1)
  1. CYMBALTA [Suspect]
     Indication: DEPRESSION
     Dosage: 30 MG
     Dates: start: 20041122, end: 20041202

REACTIONS (3)
  - ABNORMAL BEHAVIOUR [None]
  - COMMUNICATION DISORDER [None]
  - THINKING ABNORMAL [None]
